FAERS Safety Report 4314584-5 (Version None)
Quarter: 2004Q1

REPORT INFORMATION
  Report Type: 
  Country: None (occurrence: None)
  Receive Date: 20040308
  Receipt Date: 20040302
  Transmission Date: 20041129
  Serious: Yes (Other)
  Sender: FDA-Public Use
  Company Number: 200311358BVD

PATIENT
  Age: 54 Year
  Sex: Male
  Weight: 70 kg

DRUGS (1)
  1. GLUCOBAY [Suspect]
     Indication: DIABETES MELLITUS
     Dosage: 300 MG, TOTAL DAILY, ORAL
     Route: 048
     Dates: start: 20010606, end: 20030701

REACTIONS (4)
  - CALCULUS URINARY [None]
  - CRYSTAL URINE PRESENT [None]
  - INFECTION [None]
  - URINE ABNORMALITY [None]
